FAERS Safety Report 5292952-5 (Version None)
Quarter: 2007Q2

REPORT INFORMATION
  Report Type: 
  Country: None (occurrence: None)
  Receive Date: 20070411
  Receipt Date: 20070330
  Transmission Date: 20071010
  Serious: Yes (Other)
  Sender: FDA-Public Use
  Company Number: SE-JNJFOC-20070307060

PATIENT
  Age: 48 Year
  Sex: Male

DRUGS (2)
  1. CONCERTA [Suspect]
     Indication: ATTENTION DEFICIT/HYPERACTIVITY DISORDER
     Route: 048
  2. DICLOFENAC SODIUM [Concomitant]
     Indication: ARTHRALGIA
     Route: 065

REACTIONS (3)
  - HAEMOSIDEROSIS [None]
  - LIPOMATOSIS [None]
  - PORPHYRIA NON-ACUTE [None]
